FAERS Safety Report 5514576-4 (Version None)
Quarter: 2007Q4

REPORT INFORMATION
  Report Type: 
  Country: None (occurrence: None)
  Receive Date: 20071113
  Receipt Date: 20071107
  Transmission Date: 20080405
  Serious: Yes (Hospitalization)
  Sender: FDA-Public Use
  Company Number: B0491211A

PATIENT
  Age: 75 Year
  Sex: Male

DRUGS (3)
  1. VALTREX [Suspect]
     Indication: HERPES ZOSTER
     Dosage: 1000MG THREE TIMES PER DAY
     Route: 048
     Dates: start: 20070921, end: 20070928
  2. UFT [Concomitant]
     Route: 048
  3. GATIFLOXACIN [Concomitant]
     Dates: start: 20070918

REACTIONS (1)
  - RENAL DISORDER [None]
